FAERS Safety Report 24393251 (Version 2)
Quarter: 2024Q4

REPORT INFORMATION
  Report Type: Spontaneous
  Country: US (occurrence: US)
  Receive Date: 20241003
  Receipt Date: 20241212
  Transmission Date: 20250114
  Serious: No
  Sender: PFIZER
  Company Number: US-PFIZER INC-PV202300208204

PATIENT
  Age: 71 Year
  Sex: Male

DRUGS (2)
  1. TALZENNA [Suspect]
     Active Substance: TALAZOPARIB TOSYLATE
     Dosage: TAKE 1 CAPSULE BY MOUTH EVERY THIRD DAY (EVERY 3 DAYS)
     Route: 048
  2. XTANDI [Suspect]
     Active Substance: ENZALUTAMIDE
     Dosage: UNK

REACTIONS (5)
  - Off label use [Unknown]
  - Product dose omission in error [Unknown]
  - Vision blurred [Unknown]
  - Glucose tolerance impaired [Unknown]
  - Dizziness [Unknown]
